FAERS Safety Report 10183190 (Version 1)
Quarter: 2014Q2

REPORT INFORMATION
  Report Type: Spontaneous
  Country: GB (occurrence: None)
  Receive Date: 20140516
  Receipt Date: 20140516
  Transmission Date: 20141212
  Serious: Yes (Disabling, Other)
  Sender: FDA-Public Use
  Company Number: AUR-APL-2014-05550

PATIENT
  Age: 85 Year
  Sex: 0

DRUGS (2)
  1. CIPROFLOXACIN [Suspect]
     Indication: PRODUCT USED FOR UNKNOWN INDICATION
  2. NAPROXEN [Concomitant]

REACTIONS (4)
  - Pain in extremity [None]
  - Gait disturbance [None]
  - Tendonitis [None]
  - Gout [None]
